FAERS Safety Report 5081555-3 (Version None)
Quarter: 2006Q3

REPORT INFORMATION
  Report Type: 
  Country: None (occurrence: None)
  Receive Date: 20060811
  Receipt Date: 20060801
  Transmission Date: 20061208
  Serious: Yes (Hospitalization)
  Sender: FDA-Public Use
  Company Number: 2005US001604

PATIENT
  Age: 8 Year
  Sex: Female
  Weight: 22 kg

DRUGS (12)
  1. PROGRAF [Suspect]
     Indication: PROPHYLAXIS AGAINST TRANSPLANT REJECTION
  2. ZENAPAX [Suspect]
     Indication: RENAL TRANSPLANT
     Dosage: 25 MG UID/QD IV NOS
     Route: 042
     Dates: start: 20050906, end: 20050906
  3. ZENAPAX [Suspect]
     Indication: RENAL TRANSPLANT
     Dosage: 25 MG UID/QD IV NOS
     Route: 042
     Dates: start: 20050921, end: 20050921
  4. ZENAPAX [Suspect]
     Indication: RENAL TRANSPLANT
     Dosage: 25 MG UID/QD IV NOS
     Route: 042
     Dates: start: 20051010, end: 20051010
  5. ZENAPAX [Suspect]
     Indication: RENAL TRANSPLANT
     Dosage: 25 MG UID/QD IV NOS
     Route: 042
     Dates: start: 20051117, end: 20051117
  6. AMLODIPINE [Concomitant]
  7. SEPTRA DS [Concomitant]
  8. MAGNESIUM OXIDE [Concomitant]
  9. VALCYTE [Concomitant]
  10. NYSTATIN [Concomitant]
  11. MIRALAX [Concomitant]
  12. PREVACID [Concomitant]

REACTIONS (5)
  - BACTERIAL PYELONEPHRITIS [None]
  - COMPLICATIONS OF TRANSPLANTED KIDNEY [None]
  - HEART RATE INCREASED [None]
  - KLEBSIELLA INFECTION [None]
  - RESPIRATORY RATE INCREASED [None]
